FAERS Safety Report 5767281-3 (Version None)
Quarter: 2008Q2

REPORT INFORMATION
  Report Type: 
  Country: None (occurrence: None)
  Receive Date: 20080612
  Receipt Date: 20080602
  Transmission Date: 20081010
  Serious: Yes (Death, Hospitalization, Other)
  Sender: FDA-Public Use
  Company Number: GR-ELI_LILLY_AND_COMPANY-GR200805004536

PATIENT
  Age: 69 Year
  Sex: Male
  Weight: 90 kg

DRUGS (3)
  1. GEMZAR [Suspect]
     Indication: PANCREATIC CARCINOMA
     Dosage: 1000 MG/M2, UNKNOWN
     Route: 042
     Dates: start: 20080514, end: 20080514
  2. DILTIAZEM HCL [Concomitant]
     Indication: ARRHYTHMIA
     Dosage: 60 MG, DAILY (1/D)
     Route: 048
  3. DIOVAN HCT [Concomitant]
     Indication: HYPERTENSION
     Dosage: 160/12.5 UNK, DAILY (1/D)
     Route: 048

REACTIONS (5)
  - COMA [None]
  - DEATH [None]
  - PYREXIA [None]
  - RESPIRATORY TRACT INFECTION [None]
  - SOMNOLENCE [None]
